FAERS Safety Report 7642769-9 (Version None)
Quarter: 2011Q3

REPORT INFORMATION
  Report Type: 
  Country: None (occurrence: None)
  Receive Date: 20110728
  Receipt Date: 20110720
  Transmission Date: 20111222
  Serious: Yes (Disabling)
  Sender: FDA-Public Use
  Company Number: PHHY2011GB65050

PATIENT
  Age: 72 Year
  Sex: Female
  Weight: 63 kg

DRUGS (9)
  1. SIMVASTATIN [Concomitant]
     Dosage: UNK UKN, UNK
     Dates: start: 20110307
  2. DOXAZOSIN MESYLATE [Concomitant]
     Dosage: UNK UKN, UNK
     Dates: start: 20110510
  3. AMLODIPINE BESYLATE [Concomitant]
     Dosage: UNK UKN, UNK
     Dates: start: 20110307
  4. BISOPROLOL FUMARATE [Suspect]
  5. ERYTHROMYCIN [Concomitant]
     Dosage: UNK UKN, UNK
     Dates: start: 20110531
  6. METFORMIN HCL [Concomitant]
     Dosage: UNK UKN, UNK
     Dates: start: 20110214
  7. RAMIPRIL [Concomitant]
     Dosage: UNK UKN, UNK
     Dates: start: 20110307
  8. ACETAMINOPHEN [Concomitant]
     Dosage: UNK UKN, UNK
     Dates: start: 20110531
  9. DIPROBASE [Concomitant]
     Dosage: UNK UKN, UNK
     Dates: start: 20110426

REACTIONS (1)
  - PAIN IN JAW [None]
